FAERS Safety Report 9206162 (Version 1)
Quarter: 2013Q2

REPORT INFORMATION
  Report Type: Spontaneous
  Country: US (occurrence: None)
  Receive Date: 20130401
  Receipt Date: 20130401
  Transmission Date: 20140414
  Serious: Yes (Other)
  Sender: FDA-Public Use
  Company Number: None

PATIENT
  Age: 60 Year
  Sex: Male
  Weight: 74.84 kg

DRUGS (1)
  1. CYMBALTA [Suspect]
     Indication: GENERALISED ANXIETY DISORDER
     Route: 048
     Dates: start: 20000701, end: 20130325

REACTIONS (10)
  - Abdominal pain upper [None]
  - Vomiting [None]
  - Diarrhoea [None]
  - Pyrexia [None]
  - Chills [None]
  - Night sweats [None]
  - Nausea [None]
  - Mood swings [None]
  - Depression [None]
  - Drug withdrawal syndrome [None]
